FAERS Safety Report 15246675 (Version 1)
Quarter: 2018Q3

REPORT INFORMATION
  Report Type: Spontaneous
  Country: None (occurrence: TR)
  Receive Date: 20180806
  Receipt Date: 20180806
  Transmission Date: 20181010
  Serious: Yes (Other)
  Sender: FDA-Public Use
  Company Number: TR-LABORATOIRE HRA PHARMA-2053340

PATIENT
  Age: 34 Year
  Sex: Female

DRUGS (1)
  1. ELLA [Suspect]
     Active Substance: ULIPRISTAL ACETATE
     Indication: POST COITAL CONTRACEPTION
     Route: 048
     Dates: start: 20180609, end: 20180609

REACTIONS (2)
  - Abortion missed [None]
  - Exposure during pregnancy [None]
